FAERS Safety Report 23925671 (Version 2)
Quarter: 2024Q2

REPORT INFORMATION
  Report Type: Spontaneous
  Country: US (occurrence: US)
  Receive Date: 20240531
  Receipt Date: 20240618
  Transmission Date: 20240715
  Serious: No
  Sender: FDA-Public Use
  Company Number: US-BAYER-2024A079651

PATIENT
  Age: 27 Year
  Sex: Female

DRUGS (1)
  1. GADAVIST [Suspect]
     Active Substance: GADOBUTROL
     Dosage: ONCE
     Dates: start: 20240523, end: 20240523

REACTIONS (4)
  - Throat irritation [Recovered/Resolved]
  - Sneezing [Recovered/Resolved]
  - Chest pain [Recovered/Resolved]
  - Hypertension [Not Recovered/Not Resolved]

NARRATIVE: CASE EVENT DATE: 20240523
